FAERS Safety Report 9157504 (Version 2)
Quarter: 2013Q2

REPORT INFORMATION
  Report Type: Spontaneous
  Country: US (occurrence: None)
  Receive Date: 20130214
  Receipt Date: 20130409
  Transmission Date: 20140414
  Serious: Yes (Other)
  Sender: FDA-Public Use
  Company Number: US-TORRENT-00000568

PATIENT
  Age: 59 Year
  Sex: Female

DRUGS (1)
  1. ZOLPIDEM TARTRATE [Suspect]
     Route: 064
     Dates: start: 20120628, end: 20120701

REACTIONS (4)
  - Suicidal ideation [None]
  - Anxiety [None]
  - Agoraphobia [None]
  - Impaired work ability [None]
